FAERS Safety Report 21448678 (Version 2)
Quarter: 2023Q1

REPORT INFORMATION
  Report Type: Report from Study
  Country: US (occurrence: US)
  Receive Date: 20221013
  Receipt Date: 20230110
  Transmission Date: 20230418
  Serious: No
  Sender: FDA-Public Use
  Company Number: US-ABBVIE-4152062

PATIENT
  Age: 46 Year
  Sex: Female

DRUGS (4)
  1. HUMIRA [Suspect]
     Active Substance: ADALIMUMAB
     Indication: Psoriasis
     Dosage: STRENGTH 40 MG CITRATE FREE
     Route: 058
     Dates: start: 20211229
  2. HUMIRA [Suspect]
     Active Substance: ADALIMUMAB
     Indication: Hidradenitis
  3. MODERNA COVID-19 VACCINE [Concomitant]
     Active Substance: ELASOMERAN
     Indication: COVID-19 immunisation
     Dosage: FIRST DOSE?FREQUENCY-ONE IN ONCE
     Route: 030
     Dates: start: 20210316, end: 20210316
  4. MODERNA COVID-19 VACCINE [Concomitant]
     Active Substance: ELASOMERAN
     Indication: COVID-19 immunisation
     Dosage: SECOND DOSE?FREQUENCY-ONE IN ONCE
     Route: 030
     Dates: start: 20210413, end: 20210413

REACTIONS (3)
  - Skin lesion [Not Recovered/Not Resolved]
  - Mastitis [Unknown]
  - Breast cellulitis [Unknown]

NARRATIVE: CASE EVENT DATE: 20211229
